FAERS Safety Report 11444745 (Version 1)
Quarter: 2015Q3

REPORT INFORMATION
  Report Type: Spontaneous
  Country: DE (occurrence: None)
  Receive Date: 20150831
  Receipt Date: 20150831
  Transmission Date: 20151125
  Serious: Yes (Hospitalization)
  Sender: FDA-Public Use
  Company Number: DE-LHC-2015111

PATIENT
  Age: 27 Year
  Sex: Male

DRUGS (1)
  1. OXYGEN (GENERIC) (INHALATION GAS) (VERUM) [Suspect]
     Active Substance: OXYGEN
     Indication: OXYGEN SATURATION DECREASED
     Route: 055

REACTIONS (3)
  - Hypercapnia [None]
  - Electroencephalogram abnormal [None]
  - Stupor [None]
